FAERS Safety Report 12301132 (Version 1)
Quarter: 2016Q2

REPORT INFORMATION
  Report Type: Spontaneous
  Country: IT (occurrence: IT)
  Receive Date: 20160425
  Receipt Date: 20160425
  Transmission Date: 20160815
  Serious: Yes (Other)
  Sender: FDA-Public Use
  Company Number: IT-JNJFOC-20160419492

PATIENT
  Age: 46 Year
  Sex: Female

DRUGS (12)
  1. PERICIAZINE [Suspect]
     Active Substance: PERICIAZINE
     Indication: ACUTE PSYCHOSIS
     Route: 048
     Dates: start: 20140101, end: 20160405
  2. LARGACTIL [Suspect]
     Active Substance: CHLORPROMAZINE
     Indication: HALLUCINATION, VISUAL
     Route: 048
     Dates: start: 20140101, end: 20160405
  3. LARGACTIL [Suspect]
     Active Substance: CHLORPROMAZINE
     Indication: HALLUCINATION, VISUAL
     Route: 048
  4. RIVOTRIL [Suspect]
     Active Substance: CLONAZEPAM
     Indication: EPILEPSY
     Route: 048
  5. RIVOTRIL [Suspect]
     Active Substance: CLONAZEPAM
     Indication: EPILEPSY
     Route: 048
     Dates: start: 20140101, end: 20160405
  6. GABAPENTIN. [Suspect]
     Active Substance: GABAPENTIN
     Indication: EPILEPSY
     Route: 065
     Dates: start: 20140101, end: 20160405
  7. SERENASE [Suspect]
     Active Substance: HALOPERIDOL
     Indication: AGITATION
     Route: 048
     Dates: start: 20140101, end: 20160405
  8. TALOFEN [Suspect]
     Active Substance: PROMAZINE HYDROCHLORIDE
     Indication: AGITATION
     Route: 048
     Dates: start: 20140101, end: 20160405
  9. TEGRETOL [Suspect]
     Active Substance: CARBAMAZEPINE
     Indication: EPILEPSY
     Route: 048
  10. AKINETON [Suspect]
     Active Substance: BIPERIDEN HYDROCHLORIDE
     Indication: TREMOR
     Route: 048
     Dates: start: 20140101, end: 20160405
  11. SEROQUEL [Suspect]
     Active Substance: QUETIAPINE FUMARATE
     Indication: SCHIZOPHRENIA
     Route: 048
     Dates: start: 20140101, end: 20160405
  12. TEGRETOL [Suspect]
     Active Substance: CARBAMAZEPINE
     Indication: EPILEPSY
     Route: 048
     Dates: start: 20140101, end: 20160405

REACTIONS (4)
  - Tremor [Recovering/Resolving]
  - Disorganised speech [Recovering/Resolving]
  - Confusional state [Recovering/Resolving]
  - Stereotypy [Recovering/Resolving]

NARRATIVE: CASE EVENT DATE: 20160405
